FAERS Safety Report 21640495 (Version 1)
Quarter: 2022Q4

REPORT INFORMATION
  Report Type: Spontaneous
  Country: US (occurrence: US)
  Receive Date: 20221124
  Receipt Date: 20221124
  Transmission Date: 20230113
  Serious: No
  Sender: FDA-Public Use
  Company Number: US-BEH-2022152077

PATIENT
  Age: 76 Year
  Sex: Male

DRUGS (1)
  1. HIZENTRA [Suspect]
     Active Substance: HUMAN IMMUNOGLOBULIN G
     Indication: Primary immunodeficiency syndrome
     Dosage: 15 GRAM
     Route: 058
     Dates: start: 20221108

REACTIONS (2)
  - Pollakiuria [Unknown]
  - Nausea [Unknown]

NARRATIVE: CASE EVENT DATE: 20221111
